FAERS Safety Report 6150397-X (Version None)
Quarter: 2009Q2

REPORT INFORMATION
  Report Type: 
  Country: None (occurrence: None)
  Receive Date: 20090408
  Receipt Date: 20090408
  Transmission Date: 20091009
  Serious: Yes (Hospitalization)
  Sender: FDA-Public Use
  Company Number: None

PATIENT
  Age: 87 Year
  Sex: Male
  Weight: 71 kg

DRUGS (2)
  1. LISINOPRIL [Suspect]
     Indication: HYPERTENSION
     Dosage: 5 MG AT BEDTIME PO
     Route: 048
     Dates: start: 20071210, end: 20081006
  2. HYDROCHLOROTHIAZIDE [Suspect]
     Indication: HYPERTENSION
     Dosage: 25 MG AM PO
     Route: 048
     Dates: start: 19980420, end: 20081006

REACTIONS (6)
  - HEADACHE [None]
  - HYPERTENSION [None]
  - OBSTRUCTIVE UROPATHY [None]
  - PARAESTHESIA [None]
  - PELVI-URETERIC OBSTRUCTION [None]
  - RENAL FAILURE ACUTE [None]
